FAERS Safety Report 14826126 (Version 1)
Quarter: 2018Q2

REPORT INFORMATION
  Report Type: Report from Study
  Country: BR (occurrence: BR)
  Receive Date: 20180430
  Receipt Date: 20180430
  Transmission Date: 20180711
  Serious: Yes (Other)
  Sender: FDA-Public Use
  Company Number: BR-ACCORD-066358

PATIENT
  Age: 55 Year
  Sex: Female

DRUGS (3)
  1. CAPECITABINE. [Suspect]
     Active Substance: CAPECITABINE
     Indication: METASTATIC GASTRIC CANCER
     Dosage: CYCLES WERE REPEATED EVERY 21 DAYS
     Route: 048
  2. DOCETAXEL. [Suspect]
     Active Substance: DOCETAXEL
     Indication: ADENOCARCINOMA GASTRIC
     Dosage: ON DAY 8 IV. CYCLES WERE REPEATED EVERY 21 DAYS
     Route: 033
  3. CISPLATIN. [Suspect]
     Active Substance: CISPLATIN
     Indication: METASTATIC GASTRIC CANCER
     Dosage: ON DAY 1. CYCLES WERE REPEATED EVERY 21 DAYS.
     Route: 033

REACTIONS (7)
  - Neuropathy peripheral [Unknown]
  - Upper respiratory tract infection [Unknown]
  - Decreased appetite [Unknown]
  - Chemical peritonitis [Unknown]
  - Toxicity to various agents [Unknown]
  - Alopecia [Unknown]
  - Off label use [Unknown]
